FAERS Safety Report 21351417 (Version 1)
Quarter: 2022Q3

REPORT INFORMATION
  Report Type: Spontaneous
  Country: DE (occurrence: DE)
  Receive Date: 20220919
  Receipt Date: 20220919
  Transmission Date: 20221027
  Serious: Yes (Death, Hospitalization, Other)
  Sender: FDA-Public Use
  Company Number: DE-BRISTOL-MYERS SQUIBB COMPANY-2022-088363

PATIENT
  Age: 61 Year
  Sex: Male
  Weight: 94 kg

DRUGS (3)
  1. PREDNISOLONE [Suspect]
     Active Substance: PREDNISOLONE
     Indication: Pneumonitis
     Route: 065
  2. NIVOLUMAB [Suspect]
     Active Substance: NIVOLUMAB
     Indication: Oesophageal squamous cell carcinoma
     Route: 042
     Dates: start: 20220121, end: 20220207
  3. FLUOROURACIL\LEUCOVORIN CALCIUM\OXALIPLATIN [Concomitant]
     Active Substance: FLUOROURACIL\LEUCOVORIN CALCIUM\OXALIPLATIN
     Indication: Oesophageal squamous cell carcinoma

REACTIONS (3)
  - Meningoencephalitis herpetic [Fatal]
  - Malignant neoplasm progression [Unknown]
  - Pneumonitis [Recovered/Resolved]

NARRATIVE: CASE EVENT DATE: 20220207
